FAERS Safety Report 6666320-5 (Version None)
Quarter: 2010Q2

REPORT INFORMATION
  Report Type: 
  Country: None (occurrence: None)
  Receive Date: 20100402
  Receipt Date: 20100325
  Transmission Date: 20101027
  Serious: Yes (Hospitalization)
  Sender: FDA-Public Use
  Company Number: JP-ELI_LILLY_AND_COMPANY-JP201002007466

PATIENT
  Sex: Female
  Weight: 38 kg

DRUGS (7)
  1. ZYPREXA [Suspect]
     Indication: BIPOLAR I DISORDER
     Dosage: 5 MG, DAILY (1/D)
     Route: 048
     Dates: start: 20100209, end: 20100225
  2. GASCON [Concomitant]
     Indication: ILEUS
     Dosage: 120 MG, DAILY (1/D)
     Route: 048
     Dates: start: 20100208, end: 20100302
  3. GASMOTIN [Concomitant]
     Indication: ILEUS
     Dosage: 15 MG, DAILY (1/D)
     Route: 048
     Dates: start: 20100208, end: 20100302
  4. GLYSENNID [Concomitant]
     Indication: ILEUS
     Dosage: 48 MG, DAILY (1/D)
     Route: 048
     Dates: start: 20100208
  5. EVAMYL [Concomitant]
     Indication: INSOMNIA
     Dosage: 1 MG, DAILY (1/D)
     Route: 048
     Dates: start: 20100208
  6. ALBUMIN (HUMAN) [Concomitant]
     Indication: PLEURAL EFFUSION
     Dosage: UNK, UNKNOWN
     Route: 065
     Dates: start: 20100209
  7. LASIX [Concomitant]
     Indication: PLEURAL EFFUSION

REACTIONS (3)
  - OFF LABEL USE [None]
  - PANCYTOPENIA [None]
  - PSEUDOMONAL SEPSIS [None]
